FAERS Safety Report 6691658-5 (Version None)
Quarter: 2010Q2

REPORT INFORMATION
  Report Type: 
  Country: None (occurrence: None)
  Receive Date: 20100422
  Receipt Date: 20090615
  Transmission Date: 20101027
  Serious: No
  Sender: FDA-Public Use
  Company Number: US-ASTRAZENECA-2006UW01961

PATIENT
  Age: 72 Year
  Sex: Female
  Weight: 49.9 kg

DRUGS (3)
  1. TOPROL-XL [Suspect]
     Indication: HEART RATE IRREGULAR
     Route: 048
  2. ZOCOR [Concomitant]
  3. ZOLOFT [Concomitant]

REACTIONS (6)
  - ABNORMAL DREAMS [None]
  - CONSTIPATION [None]
  - FLATULENCE [None]
  - HYPOAESTHESIA [None]
  - PARAESTHESIA [None]
  - PERIPHERAL COLDNESS [None]
